FAERS Safety Report 6687436-3 (Version None)
Quarter: 2010Q2

REPORT INFORMATION
  Report Type: 
  Country: None (occurrence: None)
  Receive Date: 20100419
  Receipt Date: 20100410
  Transmission Date: 20101027
  Serious: Yes (Hospitalization)
  Sender: FDA-Public Use
  Company Number: US-SANOFI-AVENTIS-2010SA021791

PATIENT
  Age: 68 Year
  Sex: Female

DRUGS (2)
  1. LANTUS [Suspect]
     Indication: TYPE 1 DIABETES MELLITUS
     Dosage: DOSE:9 UNIT(S)
     Route: 058
  2. OPTICLICK [Suspect]
     Indication: TYPE 1 DIABETES MELLITUS

REACTIONS (5)
  - ASTHENIA [None]
  - BLOOD GLUCOSE DECREASED [None]
  - FALL [None]
  - HIP FRACTURE [None]
  - INCOHERENT [None]
